FAERS Safety Report 5817991-4 (Version None)
Quarter: 2008Q3

REPORT INFORMATION
  Report Type: 
  Country: None (occurrence: None)
  Receive Date: 20080722
  Receipt Date: 20070803
  Transmission Date: 20090109
  Serious: Yes (Other)
  Sender: FDA-Public Use
  Company Number: US-BAYER-US-2007-028891

PATIENT
  Age: 24 Year
  Sex: Female

DRUGS (3)
  1. MAGNEVIST [Suspect]
     Indication: NUCLEAR MAGNETIC RESONANCE IMAGING BRAIN
     Dosage: UNIT DOSE: 17 ML
     Route: 042
     Dates: start: 20070731, end: 20070731
  2. ROCEPHIN [Concomitant]
  3. TYLENOL [Concomitant]

REACTIONS (9)
  - BURNING SENSATION [None]
  - DYSPNOEA [None]
  - EYE OEDEMA [None]
  - HOT FLUSH [None]
  - HYPERHIDROSIS [None]
  - NAUSEA [None]
  - PRURITUS [None]
  - THROAT TIGHTNESS [None]
  - URTICARIA [None]
